FAERS Safety Report 6588367-X (Version None)
Quarter: 2010Q1

REPORT INFORMATION
  Report Type: 
  Country: None (occurrence: None)
  Receive Date: 20100218
  Receipt Date: 20100205
  Transmission Date: 20100710
  Serious: Yes (Hospitalization)
  Sender: FDA-Public Use
  Company Number: SE-ROCHE-683949

PATIENT

DRUGS (3)
  1. BEVACIZUMAB [Suspect]
     Dosage: LAST DOSE TAKEN ON 26 JANUARY2010. DOSE AND FREQUENCY AS PER PROTOCOL
     Route: 065
     Dates: start: 20100108
  2. OXALIPLATIN [Concomitant]
     Dosage: FORM: BOLUS INJECTION AS PER PROTOCOL. DOSE : UNKNOWN, DATE OF LAST DOSE: 26 JANUARY 2010.
     Route: 065
     Dates: start: 20100108
  3. 5-FU [Concomitant]
     Dosage: FORM: BOLUS INJECTION AS PER PROTOCOL. DOSE : UNKNOWN, DATE OF LAST DOSE: 26 JANUARY 2010.
     Route: 065
     Dates: start: 20100108

REACTIONS (1)
  - METASTASES TO BONE [None]
